FAERS Safety Report 16930316 (Version 3)
Quarter: 2019Q4

REPORT INFORMATION
  Report Type: Spontaneous
  Country: US (occurrence: US)
  Receive Date: 20191017
  Receipt Date: 20191223
  Transmission Date: 20200122
  Serious: No
  Sender: FDA-Public Use
  Company Number: US-PFIZER INC-2019443890

PATIENT
  Age: 55 Year

DRUGS (1)
  1. CADUET [Suspect]
     Active Substance: AMLODIPINE BESYLATE\ATORVASTATIN CALCIUM
     Dosage: 80 MG, 1X/DAY (1 TABLET ONCE A DAY)
     Route: 048

REACTIONS (2)
  - Feeling abnormal [Unknown]
  - Oedema peripheral [Unknown]
